FAERS Safety Report 20190531 (Version 2)
Quarter: 2021Q4

REPORT INFORMATION
  Report Type: Report from Study
  Country: KR (occurrence: KR)
  Receive Date: 20211215
  Receipt Date: 20211229
  Transmission Date: 20220304
  Serious: Yes (Death, Hospitalization, Other)
  Sender: FDA-Public Use
  Company Number: KR-BRISTOL-MYERS SQUIBB COMPANY-BMS-2021-038176

PATIENT
  Age: 84 Year
  Sex: Male
  Weight: 80 kg

DRUGS (21)
  1. NIVOLUMAB [Suspect]
     Active Substance: NIVOLUMAB
     Indication: Prostate cancer
     Dosage: 100 MILLILITER
     Route: 042
     Dates: start: 20201120, end: 20210405
  2. DOCETAXEL [Suspect]
     Active Substance: DOCETAXEL
     Indication: Prostate cancer
     Dosage: 140 MILLIGRAM
     Route: 065
     Dates: start: 20201120, end: 20210405
  3. PREDNISOLONE [Suspect]
     Active Substance: PREDNISOLONE
     Indication: Prostate cancer
     Dosage: 10 MILLIGRAM
     Route: 065
     Dates: start: 20201120, end: 20210404
  4. LIPITOR [Concomitant]
     Active Substance: ATORVASTATIN CALCIUM
     Indication: Product used for unknown indication
     Dosage: 1 DOSAGE FORM = 1 UNIT NOS
     Route: 048
     Dates: start: 20200811
  5. OLMESARTAN MEDOXOMIL [Concomitant]
     Active Substance: OLMESARTAN MEDOXOMIL
     Indication: Product used for unknown indication
     Dosage: 1 DOSAGE FORM = 1 UNIT NOS
     Route: 048
     Dates: start: 20200811
  6. BESZYME [Concomitant]
     Indication: Prophylaxis
     Dosage: 1 DOSAGE FORM= 3 UNITS NOS
     Route: 048
     Dates: start: 20210112, end: 20210415
  7. LACTULOSE [Concomitant]
     Active Substance: LACTULOSE
     Indication: Product used for unknown indication
     Dosage: 1 DOSAGE FORM =15 UNIT NOS
     Route: 048
     Dates: start: 20210201, end: 20210419
  8. TRAMADOL HYDROCHLORIDE [Concomitant]
     Active Substance: TRAMADOL HYDROCHLORIDE
     Indication: Product used for unknown indication
     Dosage: 50 MILLIGRAM
     Route: 048
     Dates: start: 20210201, end: 20210419
  9. MYPOL [CODEINE PHOSPHATE;IBUPROFEN;PARACETAMOL] [Concomitant]
     Indication: Product used for unknown indication
     Dosage: 1 DOSAGE FORM = 3 UNITS NOS
     Route: 048
     Dates: start: 20201214, end: 20210419
  10. MEGACE ORAL SUSPENSION [Concomitant]
     Indication: Product used for unknown indication
     Dosage: 1 DOSAGE FORM = 10 UNITS NOS
     Route: 048
     Dates: start: 20210222, end: 20210419
  11. HEMOREX [BENZOCAINE;ESCULOSIDE;HYDROCORTISONE ACETATE] [Concomitant]
     Indication: Product used for unknown indication
     Dosage: 35 GRAM
     Route: 061
     Dates: start: 20210315, end: 20210419
  12. COMBIFLEX [AMINO ACIDS NOS;CALCIUM;GLUCOSE;MAGNESIUM;POTASSIUM;SODIUM] [Concomitant]
     Indication: Prophylaxis
     Dosage: 1 DOSAGE FORM= 1100 UNIT NOS
     Route: 042
     Dates: start: 20210406, end: 20210406
  13. COMBIFLEX [AMINO ACIDS NOS;CALCIUM;GLUCOSE;MAGNESIUM;POTASSIUM;SODIUM] [Concomitant]
     Dosage: 1 DOSAGE FORM= 1100 UNIT NOS
     Route: 042
     Dates: start: 20210415, end: 20210415
  14. TAMIPOOL [ASCORBIC ACID;BIOTIN;CYANOCOBALAMIN;DEXPANTHENOL;ERGOCALCIFE [Concomitant]
     Indication: Prophylaxis
     Dosage: 1 DOSAGE FORM= 1 UNIT NOS
     Route: 042
     Dates: start: 20210406, end: 20210406
  15. TAMIPOOL [ASCORBIC ACID;BIOTIN;CYANOCOBALAMIN;DEXPANTHENOL;ERGOCALCIFE [Concomitant]
     Dosage: 1 DOSAGE FORM= 1 UNIT NOS
     Route: 042
     Dates: start: 20210415, end: 20210415
  16. MAGNESIUM OXIDE [Concomitant]
     Active Substance: MAGNESIUM OXIDE
     Indication: Product used for unknown indication
     Dosage: 1500 MILLIGRAM
     Route: 048
     Dates: start: 20201119, end: 20210426
  17. PHOSTEN [Concomitant]
     Indication: Product used for unknown indication
     Dosage: 1 DOSAGE FORM= 20 UNIT NOS
     Route: 042
     Dates: start: 20210419, end: 20210515
  18. ALBUMIN HUMAN [Concomitant]
     Active Substance: ALBUMIN HUMAN
     Indication: Product used for unknown indication
     Dosage: 1 DOSAGE FORM= 100 UNIT NOS
     Route: 042
     Dates: start: 20210419
  19. HARNAL [Concomitant]
     Active Substance: TAMSULOSIN HYDROCHLORIDE
     Indication: Prophylaxis
     Dosage: 0.2 MILLIGRAM
     Route: 048
     Dates: start: 20201126, end: 20210419
  20. DEXAMETHASONE [Concomitant]
     Active Substance: DEXAMETHASONE
     Indication: Product used for unknown indication
     Dosage: 10 MILLIGRAM
     Route: 042
     Dates: start: 20210405, end: 20210405
  21. PARAFFIN [Concomitant]
     Active Substance: PARAFFIN
     Indication: Product used for unknown indication
     Dosage: 10 GRAM
     Route: 061
     Dates: start: 20210704

REACTIONS (2)
  - Pneumonia [Recovered/Resolved with Sequelae]
  - Pneumonitis [Fatal]

NARRATIVE: CASE EVENT DATE: 20210419
